FAERS Safety Report 24237521 (Version 1)
Quarter: 2024Q3

REPORT INFORMATION
  Report Type: Spontaneous
  Country: IT (occurrence: IT)
  Receive Date: 20240822
  Receipt Date: 20240822
  Transmission Date: 20241017
  Serious: Yes (Hospitalization, Other)
  Sender: PFIZER
  Company Number: IT-MLMSERVICE-20240807-PI156016-00271-1

PATIENT
  Age: 71 Year
  Sex: Male

DRUGS (7)
  1. RITUXIMAB [Suspect]
     Active Substance: RITUXIMAB
     Indication: Gastrointestinal lymphoma
     Dosage: UNK, CYCLIC (4 CYCLES, R-COMP)
     Dates: start: 202107, end: 202111
  2. VINCRISTINE SULFATE [Suspect]
     Active Substance: VINCRISTINE SULFATE
     Indication: Gastrointestinal lymphoma
     Dosage: UNK, CYCLIC (4 CYCLES, R-COMP)
     Dates: start: 202107, end: 202111
  3. DOXORUBICIN HYDROCHLORIDE [Suspect]
     Active Substance: DOXORUBICIN HYDROCHLORIDE
     Indication: Gastrointestinal lymphoma
     Dosage: UNK, CYCLIC (4 CYCLES, R-COMP)
     Dates: start: 202107, end: 202111
  4. CYCLOPHOSPHAMIDE [Suspect]
     Active Substance: CYCLOPHOSPHAMIDE
     Indication: Gastrointestinal lymphoma
     Dosage: UNK, CYCLIC (4 CYCLES, R-COMP)
     Dates: start: 202107, end: 202111
  5. PREDNISONE [Suspect]
     Active Substance: PREDNISONE
     Indication: Gastrointestinal lymphoma
     Dosage: UNK, CYCLIC (4 CYCLES, R-COMP)
     Dates: start: 202107, end: 202111
  6. PREDNISONE [Suspect]
     Active Substance: PREDNISONE
     Indication: COVID-19
     Dosage: UNK (HIGH DOSE)
     Dates: start: 202308, end: 2023
  7. LAMIVUDINE [Concomitant]
     Active Substance: LAMIVUDINE
     Indication: Prophylaxis
     Dosage: UNK
     Dates: start: 2021, end: 202306

REACTIONS (2)
  - Hepatic failure [Recovered/Resolved]
  - Hepatitis B reactivation [Recovered/Resolved]

NARRATIVE: CASE EVENT DATE: 20230101
